FAERS Safety Report 7636406-7 (Version None)
Quarter: 2011Q3

REPORT INFORMATION
  Report Type: 
  Country: None (occurrence: None)
  Receive Date: 20110726
  Receipt Date: 20110714
  Transmission Date: 20111222
  Serious: Yes (Hospitalization)
  Sender: FDA-Public Use
  Company Number: US-ASTRAZENECA-2011SE42154

PATIENT
  Age: 93 Year
  Sex: Female
  Weight: 63 kg

DRUGS (12)
  1. TRIMETHOPRIM [Concomitant]
     Indication: URINARY TRACT INFECTION
  2. SEROQUEL XR [Suspect]
     Route: 048
     Dates: start: 20100901
  3. STOOL SOFTNER [Concomitant]
  4. SEROQUEL XR [Suspect]
     Route: 048
     Dates: start: 20100701, end: 20100701
  5. SEROQUEL XR [Suspect]
     Route: 048
     Dates: start: 20100901
  6. SEROQUEL XR [Suspect]
     Indication: DEMENTIA
     Route: 048
     Dates: start: 20100701, end: 20100701
  7. XANAX [Concomitant]
  8. SEROQUEL XR [Suspect]
     Indication: SLEEP DISORDER
     Route: 048
     Dates: start: 20100701, end: 20100701
  9. SEROQUEL XR [Suspect]
     Route: 048
  10. SEROQUEL XR [Suspect]
     Route: 048
     Dates: start: 20100701, end: 20100701
  11. ARACEPT [Concomitant]
  12. SEROQUEL XR [Suspect]
     Route: 048

REACTIONS (5)
  - WEIGHT INCREASED [None]
  - URINARY TRACT INFECTION [None]
  - WRONG TECHNIQUE IN DRUG USAGE PROCESS [None]
  - DYSPHAGIA [None]
  - OFF LABEL USE [None]
